FAERS Safety Report 5343223-X (Version None)
Quarter: 2007Q2

REPORT INFORMATION
  Report Type: 
  Country: None (occurrence: None)
  Receive Date: 20070416
  Receipt Date: 20070205
  Transmission Date: 20071010
  Serious: No
  Sender: FDA-Public Use
  Company Number: 2007SP000405

PATIENT
  Age: 51 Year
  Sex: Male
  Weight: 88.4514 kg

DRUGS (4)
  1. LUNESTA [Suspect]
     Indication: INSOMNIA
     Dosage: 3 MG;HS;ORAL
     Route: 048
     Dates: start: 20070101, end: 20070101
  2. LYRICA [Concomitant]
  3. ANTIHYPERTENSIVES [Concomitant]
  4. MUSCLE RELAXANTS [Concomitant]

REACTIONS (1)
  - INITIAL INSOMNIA [None]
